FAERS Safety Report 22114564 (Version 1)
Quarter: 2023Q1

REPORT INFORMATION
  Report Type: Spontaneous
  Country: US (occurrence: None)
  Receive Date: 20230317
  Receipt Date: 20230317
  Transmission Date: 20230417
  Serious: No
  Sender: FDA-Public Use
  Company Number: None

PATIENT

DRUGS (1)
  1. FORTEO [Suspect]
     Active Substance: TERIPARATIDE

REACTIONS (6)
  - Dizziness [None]
  - Feeling abnormal [None]
  - Nausea [None]
  - Headache [None]
  - Middle insomnia [None]
  - Therapy cessation [None]
